FAERS Safety Report 21193351 (Version 3)
Quarter: 2022Q4

REPORT INFORMATION
  Report Type: Report from Study
  Country: US (occurrence: US)
  Receive Date: 20220810
  Receipt Date: 20221012
  Transmission Date: 20230112
  Serious: Yes (Death, Hospitalization)
  Sender: FDA-Public Use
  Company Number: US-BIOGEN-2022BI01146082

PATIENT
  Age: 50 Year
  Sex: Female
  Weight: 59.2 kg

DRUGS (4)
  1. TYSABRI [Suspect]
     Active Substance: NATALIZUMAB
     Indication: Disease risk factor
     Route: 050
     Dates: start: 20200326
  2. PREDNISONE [Concomitant]
     Active Substance: PREDNISONE
     Indication: Graft versus host disease
     Route: 050
  3. SIROLIMUS [Concomitant]
     Active Substance: SIROLIMUS
     Indication: Graft versus host disease
     Dosage: QOD - EVERY OTHER DAY
     Route: 050
  4. TACROLIMUS [Concomitant]
     Active Substance: TACROLIMUS
     Indication: Graft versus host disease
     Route: 050

REACTIONS (7)
  - Bacterial infection [Fatal]
  - Fungal infection [Fatal]
  - Graft versus host disease [Fatal]
  - Clostridial sepsis [Recovered/Resolved]
  - Transplant dysfunction [Recovered/Resolved]
  - Clostridium bacteraemia [Recovered/Resolved]
  - Septic shock [Recovered/Resolved]

NARRATIVE: CASE EVENT DATE: 20200416
